FAERS Safety Report 5776130-9 (Version None)
Quarter: 2008Q2

REPORT INFORMATION
  Report Type: 
  Country: None (occurrence: None)
  Receive Date: 20080617
  Receipt Date: 20080610
  Transmission Date: 20081010
  Serious: Yes (Other)
  Sender: FDA-Public Use
  Company Number: US-AMGEN-QUU286463

PATIENT
  Sex: Female

DRUGS (4)
  1. ENBREL [Suspect]
     Indication: PSORIATIC ARTHROPATHY
     Route: 064
     Dates: start: 19991019
  2. ENBREL [Suspect]
     Indication: PSORIASIS
  3. VITAMIN B-12 [Concomitant]
     Route: 064
  4. UNISOM [Concomitant]
     Route: 064

REACTIONS (1)
  - GASTROINTESTINAL DISORDER CONGENITAL [None]
